FAERS Safety Report 7330518-3 (Version None)
Quarter: 2011Q1

REPORT INFORMATION
  Report Type: 
  Country: None (occurrence: None)
  Receive Date: 20110304
  Receipt Date: 20110223
  Transmission Date: 20110831
  Serious: No
  Sender: FDA-Public Use
  Company Number: US-BIOGENIDEC-2011BI007258

PATIENT
  Age: 29 Year
  Sex: Female

DRUGS (5)
  1. TYSABRI [Suspect]
     Route: 042
     Dates: start: 20070302, end: 20080709
  2. CLONAZEPAM [Concomitant]
     Indication: ANXIETY
     Dates: start: 20080101
  3. TYSABRI [Suspect]
     Indication: MULTIPLE SCLEROSIS
     Route: 042
     Dates: start: 20090107
  4. NEURONTIN [Concomitant]
     Indication: PRODUCT USED FOR UNKNOWN INDICATION
  5. CENTURA (NOS) [Concomitant]
     Indication: PRODUCT USED FOR UNKNOWN INDICATION

REACTIONS (7)
  - URINARY INCONTINENCE [None]
  - CONSTIPATION [None]
  - FAECAL INCONTINENCE [None]
  - MEMORY IMPAIRMENT [None]
  - PAIN [None]
  - TONGUE BITING [None]
  - FALL [None]
